FAERS Safety Report 15949696 (Version 1)
Quarter: 2019Q1

REPORT INFORMATION
  Report Type: Spontaneous
  Country: US (occurrence: US)
  Receive Date: 20190212
  Receipt Date: 20190212
  Transmission Date: 20190417
  Serious: Yes (Other)
  Sender: FDA-Public Use
  Company Number: US-MALLINCKRODT-T201806877

PATIENT
  Age: 59 Year
  Sex: Female
  Weight: 95.25 kg

DRUGS (2)
  1. OXYCODONE/ACETAMINOPHEN [Suspect]
     Active Substance: ACETAMINOPHEN\OXYCODONE HYDROCHLORIDE
     Indication: HEADACHE
  2. OXYCODONE/ACETAMINOPHEN [Suspect]
     Active Substance: ACETAMINOPHEN\OXYCODONE HYDROCHLORIDE
     Indication: PAIN
     Dosage: 5/325MG, 1 IN THE MORNING AND 1 IN THE EVENING
     Route: 048
     Dates: start: 20181207

REACTIONS (9)
  - Drug ineffective [Unknown]
  - Lower limb fracture [Unknown]
  - Crying [Unknown]
  - Fall [Unknown]
  - Feeling jittery [Unknown]
  - Hypersensitivity [Unknown]
  - Product quality issue [Unknown]
  - Irritability [Unknown]
  - Neck pain [Unknown]

NARRATIVE: CASE EVENT DATE: 201812
